FAERS Safety Report 17507607 (Version 1)
Quarter: 2020Q1

REPORT INFORMATION
  Report Type: Spontaneous
  Country: US (occurrence: US)
  Receive Date: 20200225
  Receipt Date: 20200225
  Transmission Date: 20200409
  Serious: Yes (Hospitalization)
  Sender: FDA-Public Use
  Company Number: None

PATIENT
  Age: 57 Year
  Sex: Female

DRUGS (1)
  1. OPSUMIT [Suspect]
     Active Substance: MACITENTAN
     Indication: PULMONARY ARTERIAL HYPERTENSION
     Route: 048
     Dates: start: 20191120

REACTIONS (4)
  - Enterovirus infection [None]
  - Acute respiratory failure [None]
  - Rhinovirus infection [None]
  - Fluid overload [None]

NARRATIVE: CASE EVENT DATE: 20200213
